FAERS Safety Report 17277444 (Version 1)
Quarter: 2020Q1

REPORT INFORMATION
  Report Type: Report from Study
  Country: US (occurrence: US)
  Receive Date: 20200116
  Receipt Date: 20200116
  Transmission Date: 20200409
  Serious: No
  Sender: FDA-Public Use
  Company Number: NVSC2020US006713

PATIENT
  Sex: Female

DRUGS (1)
  1. ENTRESTO [Suspect]
     Active Substance: SACUBITRIL\VALSARTAN
     Indication: CARDIAC FAILURE
     Dosage: 1 DF (SACUBITRIL 49MG,VALSARTAN51 MG), BID
     Route: 048

REACTIONS (4)
  - Headache [Unknown]
  - Influenza [Unknown]
  - Bowel movement irregularity [Unknown]
  - Dizziness [Unknown]
